FAERS Safety Report 9857512 (Version 3)
Quarter: 2014Q1

REPORT INFORMATION
  Report Type: Report from Study
  Country: CA (occurrence: CA)
  Receive Date: 20140131
  Receipt Date: 20140205
  Transmission Date: 20141002
  Serious: Yes (Death, Other)
  Sender: FDA-Public Use
  Company Number: PHHY2014CA010874

PATIENT
  Age: 55 Year
  Sex: Female

DRUGS (3)
  1. CLOZARIL [Suspect]
     Indication: SCHIZOPHRENIA
     Dosage: UNK UKN, UNK
     Dates: start: 20101018
  2. CLOZARIL [Suspect]
     Dosage: 300 MG/DAY
     Dates: start: 201308
  3. CLOPIXOL [Suspect]
     Dosage: 17 MG, Q10 DAYS
     Route: 030

REACTIONS (4)
  - Completed suicide [Fatal]
  - Delirium [Unknown]
  - Decreased interest [Unknown]
  - Apathy [Unknown]
